FAERS Safety Report 9921977 (Version 2)
Quarter: 2014Q1

REPORT INFORMATION
  Report Type: Report from Study
  Country: FR (occurrence: FR)
  Receive Date: 20140225
  Receipt Date: 20140304
  Transmission Date: 20141002
  Serious: Yes (Hospitalization)
  Sender: FDA-Public Use
  Company Number: FR-ABBVIE-14P-056-1205830-00

PATIENT
  Age: 76 Year
  Sex: Male
  Weight: 70.36 kg

DRUGS (11)
  1. RIBAVIRIN [Suspect]
     Indication: PRODUCT USED FOR UNKNOWN INDICATION
     Route: 048
     Dates: start: 20131028
  2. SOFOSBUVIR/LEDIPASVIR/PLACEBO (SOFOSBUVIR, LEDIPASVIR) [Suspect]
     Indication: PRODUCT USED FOR UNKNOWN INDICATION
     Route: 048
     Dates: start: 20131028
  3. AVLOCARDYL [Concomitant]
     Indication: VARICES OESOPHAGEAL
     Route: 048
     Dates: start: 2009
  4. ALDACTONE [Concomitant]
     Indication: HYPERTENSION
     Route: 048
     Dates: start: 2008
  5. PERMIXON [Concomitant]
     Indication: PROSTATIC ATROPHY
     Route: 048
     Dates: start: 2006
  6. OMEXEL [Concomitant]
     Indication: PROSTATIC ATROPHY
     Route: 048
     Dates: start: 2006
  7. ANTIHEMOPHILIC FACTOR [Concomitant]
     Indication: FACTOR VIII DEFICIENCY
     Route: 030
  8. ACETAMINOPHEN [Concomitant]
     Indication: BRONCHITIS
     Route: 048
     Dates: start: 20140130
  9. NERISONE [Concomitant]
     Indication: PURPURA
     Dosage: ROUTE INTRADERMAL
     Dates: start: 20140214
  10. HOMEOPATIC COUGH SYRUP (HOMEOPATIC COUGH SYRUP) [Concomitant]
     Indication: COUGH
     Route: 048
     Dates: start: 20140127, end: 20140130
  11. LASILIX [Concomitant]
     Indication: OEDEMA PERIPHERAL
     Route: 048
     Dates: start: 20140214

REACTIONS (5)
  - Ascites [Not Recovered/Not Resolved]
  - Oedema [Recovered/Resolved]
  - Hepatic cirrhosis [Not Recovered/Not Resolved]
  - Bronchitis [Not Recovered/Not Resolved]
  - Oedema peripheral [Recovered/Resolved]
